FAERS Safety Report 9692287 (Version 1)
Quarter: 2013Q4

REPORT INFORMATION
  Report Type: Spontaneous
  Country: PL (occurrence: PL)
  Receive Date: 20131118
  Receipt Date: 20131118
  Transmission Date: 20140711
  Serious: Yes (Other)
  Sender: FDA-Public Use
  Company Number: PL-RANBAXY-2013RR-75009

PATIENT
  Age: 49 Year
  Sex: Female
  Weight: 60 kg

DRUGS (1)
  1. KLABAX 500 MG TABLET [Suspect]
     Indication: UPPER RESPIRATORY TRACT INFECTION
     Dosage: 1000 MG/DAY
     Route: 048
     Dates: start: 20130319, end: 20130322

REACTIONS (3)
  - Hypoaesthesia [Unknown]
  - Vertigo [Unknown]
  - Insomnia [Unknown]
